FAERS Safety Report 23902863 (Version 3)
Quarter: 2024Q2

REPORT INFORMATION
  Report Type: Other
  Country: US (occurrence: None)
  Receive Date: 20240527
  Receipt Date: 20240531
  Transmission Date: 20240716
  Serious: Yes (Other)
  Sender: FDA-Public Use
  Company Number: US-ROCHE-3568110

PATIENT
  Age: 82 Year
  Sex: Female
  Weight: 52.6 kg

DRUGS (1)
  1. OCREVUS [Suspect]
     Active Substance: OCRELIZUMAB
     Indication: Primary progressive multiple sclerosis
     Route: 042
     Dates: start: 202203

REACTIONS (2)
  - Sepsis [Unknown]
  - Vaginal cancer [Unknown]

NARRATIVE: CASE EVENT DATE: 20231201
